FAERS Safety Report 5033993-2 (Version None)
Quarter: 2006Q2

REPORT INFORMATION
  Report Type: 
  Country: None (occurrence: None)
  Receive Date: 20060626
  Receipt Date: 20000505
  Transmission Date: 20061013
  Serious: Yes (Death, Other)
  Sender: FDA-Public Use
  Company Number: DE-BRISTOL-MYERS SQUIBB COMPANY-13408752

PATIENT
  Age: 68 Year
  Sex: Male
  Weight: 61 kg

DRUGS (2)
  1. TAXOL [Suspect]
     Indication: SQUAMOUS CELL CARCINOMA
     Route: 042
     Dates: start: 19950724, end: 19950724
  2. CARBOPLATIN [Suspect]
     Indication: SQUAMOUS CELL CARCINOMA
     Dates: start: 19950724, end: 19950724

REACTIONS (8)
  - BONE PAIN [None]
  - CARDIAC FAILURE [None]
  - COMA [None]
  - DEPRESSED LEVEL OF CONSCIOUSNESS [None]
  - DYSPNOEA [None]
  - FATIGUE [None]
  - MUCOSAL INFLAMMATION [None]
  - NEUROTOXICITY [None]
